FAERS Safety Report 7083405-2 (Version None)
Quarter: 2010Q4

REPORT INFORMATION
  Report Type: 
  Country: None (occurrence: None)
  Receive Date: 20101104
  Receipt Date: 20101102
  Transmission Date: 20110411
  Serious: Yes (Death, Hospitalization)
  Sender: FDA-Public Use
  Company Number: A0797363A

PATIENT
  Age: 60 Year
  Sex: Female

DRUGS (6)
  1. AVANDIA [Suspect]
     Dosage: 8MG PER DAY
     Route: 048
     Dates: end: 20060612
  2. LIPITOR [Concomitant]
  3. AVAPRO [Concomitant]
  4. AMITRIPTYLINE HCL [Concomitant]
  5. INSULIN [Concomitant]
  6. COREG [Concomitant]

REACTIONS (3)
  - ATRIOVENTRICULAR BLOCK [None]
  - BUNDLE BRANCH BLOCK RIGHT [None]
  - MYOCARDIAL INFARCTION [None]
